FAERS Safety Report 11630590 (Version 1)
Quarter: 2015Q4

REPORT INFORMATION
  Report Type: Spontaneous
  Country: US (occurrence: US)
  Receive Date: 20151014
  Receipt Date: 20151014
  Transmission Date: 20160304
  Serious: No
  Sender: FDA-Public Use
  Company Number: US-PFIZER INC-2015339115

PATIENT
  Age: 52 Year
  Sex: Female
  Weight: 88 kg

DRUGS (1)
  1. EFFEXOR XR [Suspect]
     Active Substance: VENLAFAXINE HYDROCHLORIDE
     Dosage: UNK

REACTIONS (4)
  - Pre-existing condition improved [Unknown]
  - Anxiety [Unknown]
  - Therapeutic response unexpected [Unknown]
  - Hyperhidrosis [Not Recovered/Not Resolved]
